FAERS Safety Report 12906905 (Version 1)
Quarter: 2016Q4

REPORT INFORMATION
  Report Type: Spontaneous
  Country: CN (occurrence: CN)
  Receive Date: 20161103
  Receipt Date: 20161103
  Transmission Date: 20170207
  Serious: Yes (Other)
  Sender: FDA-Public Use
  Company Number: CN-PFIZER INC-2016502121

PATIENT
  Age: 53 Year
  Sex: Female
  Weight: 65 kg

DRUGS (4)
  1. FLUOROURACIL. [Concomitant]
     Active Substance: FLUOROURACIL
     Indication: BREAST CANCER IN SITU
     Dosage: 0.75 G, WEEKLY
     Route: 041
     Dates: start: 20160715, end: 20160715
  2. REDUCED GLUTATHIONE SODIUM [Concomitant]
     Active Substance: GLUTATHIONE
     Indication: BREAST CANCER IN SITU
     Dosage: 1.8 G, 1X/DAY
     Route: 041
     Dates: start: 20160714, end: 20160719
  3. PHARMORUBICIN [Suspect]
     Active Substance: EPIRUBICIN
     Indication: BREAST CANCER IN SITU
     Dosage: 40 MG, EVERY 3 WEEKS
     Route: 041
     Dates: start: 20160715, end: 20160715
  4. CYCLOPHOSPHAMIDE. [Concomitant]
     Active Substance: CYCLOPHOSPHAMIDE
     Indication: BREAST CANCER IN SITU
     Dosage: 0.8 G, WEEKLY
     Route: 041
     Dates: start: 20160715, end: 20160715

REACTIONS (4)
  - Vomiting [Unknown]
  - Transaminases increased [Recovered/Resolved]
  - Liver injury [Recovered/Resolved]
  - Nausea [Unknown]

NARRATIVE: CASE EVENT DATE: 20160715
